FAERS Safety Report 6028595-5 (Version None)
Quarter: 2008Q4

REPORT INFORMATION
  Report Type: 
  Country: None (occurrence: None)
  Receive Date: 20081222
  Receipt Date: 20081028
  Transmission Date: 20090506
  Serious: No
  Sender: FDA-Public Use
  Company Number: US-WYE-H06611908

PATIENT
  Age: 61 Year
  Sex: Female
  Weight: 112.14 kg

DRUGS (8)
  1. PRISTIQ [Suspect]
     Indication: DEPRESSION
     Dosage: 50 MG 1X PER 1 DAY, ORAL
     Route: 048
     Dates: start: 20080901
  2. ESTRACE [Concomitant]
  3. DYAZIDE [Concomitant]
  4. SYNTHROID [Concomitant]
  5. ANTIVERT [Concomitant]
  6. FLEXERIL [Concomitant]
  7. AMBIEN [Concomitant]
  8. DEXAMFETAMINE (DEXAMFETAMINE) [Concomitant]

REACTIONS (4)
  - ARTHRALGIA [None]
  - BURNING SENSATION [None]
  - PYREXIA [None]
  - RESPIRATORY DISORDER [None]
